FAERS Safety Report 13446392 (Version 2)
Quarter: 2017Q2

REPORT INFORMATION
  Report Type: Spontaneous
  Country: FR (occurrence: FR)
  Receive Date: 20170417
  Receipt Date: 20170501
  Transmission Date: 20170830
  Serious: Yes (Hospitalization)
  Sender: FDA-Public Use
  Company Number: FR-ACCORD-050412

PATIENT
  Age: 40 Year
  Sex: Male

DRUGS (9)
  1. XANAX [Concomitant]
     Active Substance: ALPRAZOLAM
  2. OXYCONTIN [Concomitant]
     Active Substance: OXYCODONE HYDROCHLORIDE
  3. ALIMTA [Suspect]
     Active Substance: PEMETREXED DISODIUM
     Indication: PRODUCT USED FOR UNKNOWN INDICATION
     Dosage: STRENGTH: 500 MG, 1000 MG EVERY 3 WEEKS, CYCLE 1
     Route: 042
     Dates: start: 20170307
  4. DOLIPRANE [Concomitant]
     Active Substance: ACETAMINOPHEN
  5. CISPLATIN ACCORD [Suspect]
     Active Substance: CISPLATIN
     Indication: PRODUCT USED FOR UNKNOWN INDICATION
     Dosage: STRENGTH: 1 MG/ML, 150 MG EVERY 3 WEEKS, CYCLE 1
     Route: 042
     Dates: start: 20170307
  6. DUPHALAC [Concomitant]
     Active Substance: LACTULOSE
  7. OXYNORM [Concomitant]
     Active Substance: OXYCODONE HYDROCHLORIDE
  8. TEMERIT [Concomitant]
     Active Substance: NEBIVOLOL
  9. EUPANTOL [Concomitant]
     Active Substance: PANTOPRAZOLE SODIUM

REACTIONS (2)
  - Erythema multiforme [Recovered/Resolved]
  - Weight decreased [Unknown]

NARRATIVE: CASE EVENT DATE: 20170312
